FAERS Safety Report 17869480 (Version 3)
Quarter: 2021Q2

REPORT INFORMATION
  Report Type: Spontaneous
  Country: US (occurrence: US)
  Receive Date: 20200608
  Receipt Date: 20210622
  Transmission Date: 20210717
  Serious: Yes (Other)
  Sender: FDA-Public Use
  Company Number: US-GILEAD-2020-0470360

PATIENT
  Age: 58 Year
  Sex: Male
  Weight: 61.68 kg

DRUGS (16)
  1. ATRIPLA [Suspect]
     Active Substance: EFAVIRENZ\EMTRICITABINE\TENOFOVIR DISOPROXIL FUMARATE
     Dosage: UNK
     Route: 048
     Dates: start: 201508, end: 201608
  2. AMOXICILIN RNP [Concomitant]
  3. IBUPROFEN. [Concomitant]
     Active Substance: IBUPROFEN
  4. PENICILLIN [PENICILLIN NOS] [Concomitant]
     Active Substance: PENICILLIN
  5. ATRIPLA [Suspect]
     Active Substance: EFAVIRENZ\EMTRICITABINE\TENOFOVIR DISOPROXIL FUMARATE
     Dosage: UNK
     Route: 048
     Dates: start: 201309, end: 201608
  6. SUSTIVA [Concomitant]
     Active Substance: EFAVIRENZ
  7. OMEPRAZOLE. [Concomitant]
     Active Substance: OMEPRAZOLE
  8. ATRIPLA [Suspect]
     Active Substance: EFAVIRENZ\EMTRICITABINE\TENOFOVIR DISOPROXIL FUMARATE
     Indication: HIV INFECTION
     Dosage: UNK
     Route: 048
     Dates: start: 2007, end: 2018
  9. SIMVASTATIN. [Concomitant]
     Active Substance: SIMVASTATIN
  10. ATRIPLA [Suspect]
     Active Substance: EFAVIRENZ\EMTRICITABINE\TENOFOVIR DISOPROXIL FUMARATE
     Dosage: UNK
     Route: 048
     Dates: start: 201001, end: 201210
  11. HYDROCODONE/ACETAMINOPHEN [Concomitant]
     Active Substance: ACETAMINOPHEN\HYDROCODONE
  12. ATRIPLA [Suspect]
     Active Substance: EFAVIRENZ\EMTRICITABINE\TENOFOVIR DISOPROXIL FUMARATE
     Dosage: UNK
     Route: 048
     Dates: start: 201210, end: 201303
  13. ATRIPLA [Suspect]
     Active Substance: EFAVIRENZ\EMTRICITABINE\TENOFOVIR DISOPROXIL FUMARATE
     Dosage: UNK
     Route: 048
     Dates: start: 200707, end: 201001
  14. BIKTARVY [Concomitant]
     Active Substance: BICTEGRAVIR SODIUM\EMTRICITABINE\TENOFOVIR ALAFENAMIDE FUMARATE
  15. ATORVASTATIN [Concomitant]
     Active Substance: ATORVASTATIN
  16. DESCOVY [Concomitant]
     Active Substance: EMTRICITABINE\TENOFOVIR ALAFENAMIDE FUMARATE

REACTIONS (10)
  - Glomerular filtration rate decreased [Unknown]
  - Chronic kidney disease [Not Recovered/Not Resolved]
  - Renal failure [Unknown]
  - Pain [Unknown]
  - Emotional distress [Unknown]
  - Blood creatinine increased [Unknown]
  - Foot fracture [Recovered/Resolved]
  - Bone density decreased [Not Recovered/Not Resolved]
  - Osteopenia [Unknown]
  - Rib fracture [Recovered/Resolved]

NARRATIVE: CASE EVENT DATE: 201106
